FAERS Safety Report 7083748-2 (Version None)
Quarter: 2010Q4

REPORT INFORMATION
  Report Type: 
  Country: None (occurrence: None)
  Receive Date: 20101104
  Receipt Date: 20101026
  Transmission Date: 20110411
  Serious: Yes (Hospitalization, Disabling)
  Sender: FDA-Public Use
  Company Number: US-MERCK-0606USA02749

PATIENT
  Age: 51 Year
  Sex: Female
  Weight: 46 kg

DRUGS (7)
  1. FOSAMAX [Suspect]
     Indication: OSTEOPOROSIS
     Route: 048
     Dates: start: 19950101, end: 20060401
  2. FOSAMAX [Suspect]
     Route: 048
     Dates: start: 20060101, end: 20060901
  3. FOSAMAX [Suspect]
     Indication: WRIST FRACTURE
     Route: 048
     Dates: start: 19950101, end: 20060401
  4. FOSAMAX [Suspect]
     Route: 048
     Dates: start: 20060101, end: 20060901
  5. CALCIUM (UNSPECIFIED) [Concomitant]
     Route: 065
  6. CENTRUM [Concomitant]
     Route: 065
  7. IRON (UNSPECIFIED) [Concomitant]
     Route: 065

REACTIONS (37)
  - ABSCESS [None]
  - BONE DENSITY DECREASED [None]
  - CONTUSION [None]
  - DENTAL CARIES [None]
  - DIPLOPIA [None]
  - DRUG ADMINISTRATION ERROR [None]
  - ENOPHTHALMOS [None]
  - EYE PENETRATION [None]
  - FACE INJURY [None]
  - FACIAL BONES FRACTURE [None]
  - FRACTURE [None]
  - GINGIVITIS [None]
  - IMPACTED FRACTURE [None]
  - IMPAIRED HEALING [None]
  - JAW FRACTURE [None]
  - NASAL SEPTUM DEVIATION [None]
  - NASAL TURBINATE HYPERTROPHY [None]
  - OBSTRUCTION [None]
  - ORAL DISORDER [None]
  - ORAL INFECTION [None]
  - OSTEOARTHRITIS [None]
  - OSTEONECROSIS OF JAW [None]
  - PAIN [None]
  - PELVIC FRACTURE [None]
  - PLEURAL EFFUSION [None]
  - POST-TRAUMATIC STRESS DISORDER [None]
  - RADIUS FRACTURE [None]
  - RIB FRACTURE [None]
  - ROAD TRAFFIC ACCIDENT [None]
  - SINUS HEADACHE [None]
  - SKIN LACERATION [None]
  - SKULL FRACTURED BASE [None]
  - STAPHYLOCOCCAL INFECTION [None]
  - SUBARACHNOID HAEMORRHAGE [None]
  - TOOTH DISORDER [None]
  - TOOTH EXTRACTION [None]
  - TOOTH LOSS [None]
